FAERS Safety Report 10917512 (Version 1)
Quarter: 2015Q1

REPORT INFORMATION
  Report Type: Spontaneous
  Country: US (occurrence: US)
  Receive Date: 20150316
  Receipt Date: 20150316
  Transmission Date: 20150721
  Serious: No
  Sender: FDA-Public Use
  Company Number: US-ENDO PHARMACEUTICALS INC.-TRAZ20140010

PATIENT
  Age: 75 Year
  Sex: Female

DRUGS (2)
  1. TRAZODONE HYDROCHLORIDE TABLETS 50MG [Suspect]
     Active Substance: TRAZODONE HYDROCHLORIDE
     Indication: INSOMNIA
     Route: 048
     Dates: end: 20140615
  2. TRAZODONE HYDROCHLORIDE TABLETS 50MG [Suspect]
     Active Substance: TRAZODONE HYDROCHLORIDE
     Dosage: 200-250 MG
     Route: 048
     Dates: start: 20140615

REACTIONS (5)
  - Extra dose administered [Unknown]
  - Drug effect decreased [Unknown]
  - Dry mouth [Unknown]
  - Dry eye [Unknown]
  - Somnolence [Unknown]

NARRATIVE: CASE EVENT DATE: 20140615
